FAERS Safety Report 6333035-2 (Version None)
Quarter: 2009Q3

REPORT INFORMATION
  Report Type: 
  Country: None (occurrence: None)
  Receive Date: 20090828
  Receipt Date: 20090820
  Transmission Date: 20100115
  Serious: Yes (Other)
  Sender: FDA-Public Use
  Company Number: US-AMGEN-QUU358383

PATIENT
  Sex: Male

DRUGS (3)
  1. ENBREL [Suspect]
     Indication: PSORIATIC ARTHROPATHY
     Route: 058
     Dates: start: 20060601
  2. ENBREL [Suspect]
     Indication: PSORIASIS
  3. HYDROCHLOROTHIAZIDE [Suspect]

REACTIONS (7)
  - ARTHROPATHY [None]
  - CUTANEOUS LUPUS ERYTHEMATOSUS [None]
  - DYSURIA [None]
  - RASH PUSTULAR [None]
  - RECTAL HAEMORRHAGE [None]
  - SINUSITIS [None]
  - WEIGHT INCREASED [None]
